FAERS Safety Report 8136484-5 (Version None)
Quarter: 2012Q1

REPORT INFORMATION
  Report Type: 
  Country: None (occurrence: None)
  Receive Date: 20120214
  Receipt Date: 20120213
  Transmission Date: 20120608
  Serious: Yes (Life-Threatening, Hospitalization)
  Sender: FDA-Public Use
  Company Number: JP-BRACCO-005627

PATIENT
  Age: 75 Year
  Sex: Male

DRUGS (1)
  1. IOPAMIDOL [Suspect]
     Indication: ANGIOGRAM
     Route: 042
     Dates: start: 20120206, end: 20120206

REACTIONS (3)
  - FOAMING AT MOUTH [None]
  - CEREBRAL INFARCTION [None]
  - LOSS OF CONSCIOUSNESS [None]
